FAERS Safety Report 19450103 (Version 1)
Quarter: 2021Q2

REPORT INFORMATION
  Report Type: Spontaneous
  Country: RU (occurrence: RU)
  Receive Date: 20210622
  Receipt Date: 20210622
  Transmission Date: 20210717
  Serious: Yes (Other)
  Sender: FDA-Public Use
  Company Number: RU-ROCHE-2849430

PATIENT
  Age: 59 Year
  Sex: Female

DRUGS (11)
  1. CARBOPLATIN. [Suspect]
     Active Substance: CARBOPLATIN
     Dosage: AUC 5 ? 685 MG ON DAY 1
     Route: 065
     Dates: start: 20201230
  2. CARBOPLATIN. [Suspect]
     Active Substance: CARBOPLATIN
     Dosage: AUC 5 ? 675 MG ON DAY 1
     Route: 065
     Dates: start: 20200120
  3. BEVACIZUMAB. [Suspect]
     Active Substance: BEVACIZUMAB
     Indication: NON-SMALL CELL LUNG CANCER
     Dosage: ON DAY 1; 21?DAY CYCLE.
     Route: 065
     Dates: start: 20201119
  4. BEVACIZUMAB. [Suspect]
     Active Substance: BEVACIZUMAB
     Indication: RENAL CANCER
     Dosage: 735 MG ON DAY 1; 21?DAY CYCLE
     Route: 065
     Dates: start: 20201210
  5. BEVACIZUMAB. [Suspect]
     Active Substance: BEVACIZUMAB
     Dosage: 712 MG ON DAY 1; 21?DAY CYCLE;  SUBSEQUENT DOSE WERE ADMINISTERED ON 20/JAN/2020, 10/FEB/2021, 03/MA
     Route: 065
     Dates: start: 20201230
  6. PACLITAXEL. [Suspect]
     Active Substance: PACLITAXEL
     Indication: RENAL CANCER
     Dosage: PACLITAXEL 175 MG/M2 ? 350 MG ON DAY 1;  SUBSEQUENT DOSES OF PACLITAXEL WERE ADMINISTERED ON 30/DEC/
     Route: 065
     Dates: start: 20201210
  7. CARBOPLATIN. [Suspect]
     Active Substance: CARBOPLATIN
     Indication: RENAL CANCER
     Dosage: AUC 5 ? 659 MG ON DAY 1
     Route: 065
     Dates: start: 20201210
  8. ATEZOLIZUMAB. [Suspect]
     Active Substance: ATEZOLIZUMAB
     Indication: NON-SMALL CELL LUNG CANCER
     Dosage: CYCLE 1 DAY 1, SUBSEQUENT DOSES WERE ADMINISTERED ON 10/DEC/2020, 30/DEC/2020, 20/JAN/2021, 10/FEB/2
     Route: 065
     Dates: start: 20201119
  9. PACLITAXEL. [Suspect]
     Active Substance: PACLITAXEL
     Indication: NON-SMALL CELL LUNG CANCER
     Dosage: 200 MG/M2 ? 400 MG IV DRIP ON DAY 1
     Route: 065
     Dates: start: 20201119
  10. CARBOPLATIN. [Suspect]
     Active Substance: CARBOPLATIN
     Indication: NON-SMALL CELL LUNG CANCER
     Dosage: CARBOPLATIN AUC 6 ? 774 MG IV DRIP ON DAY 1; CYCLE 21?DAY CYCLE
     Route: 065
     Dates: start: 20201119
  11. ATEZOLIZUMAB. [Suspect]
     Active Substance: ATEZOLIZUMAB
     Indication: RENAL CANCER

REACTIONS (3)
  - Hepatomegaly [Unknown]
  - Uterine leiomyoma [Unknown]
  - Spinal osteoarthritis [Unknown]

NARRATIVE: CASE EVENT DATE: 20210209
